FAERS Safety Report 4317401-2 (Version None)
Quarter: 2004Q1

REPORT INFORMATION
  Report Type: 
  Country: None (occurrence: None)
  Receive Date: 20040312
  Receipt Date: 20040302
  Transmission Date: 20041129
  Serious: No
  Sender: FDA-Public Use
  Company Number: 04P-056-0252272-00

PATIENT
  Age: 16 Year
  Sex: Male

DRUGS (2)
  1. VALPROATE SODIUM [Suspect]
     Dosage: 1000 MG, 1 IN 1 D, PER ORAL
     Route: 048
     Dates: start: 20020101, end: 20040101
  2. DEPAKOTE [Concomitant]

REACTIONS (1)
  - CONVULSION [None]
